FAERS Safety Report 8905164 (Version 2)
Quarter: 2012Q4

REPORT INFORMATION
  Report Type: 
  Country: US (occurrence: US)
  Receive Date: 20121109
  Receipt Date: 20121130
  Transmission Date: 20130627
  Serious: Yes (Other)
  Sender: FDA-Public Use
  Company Number: US-PFIZER INC-2012276660

PATIENT
  Age: 49 Year
  Sex: Female
  Weight: 61.22 kg

DRUGS (4)
  1. PRISTIQ [Suspect]
     Indication: DEPRESSION
     Dosage: 50 mg, 1x/day
     Route: 048
  2. XANAX [Suspect]
     Indication: INSOMNIA
     Dosage: UNK, 1x/day
  3. XANAX [Suspect]
     Dosage: UNK, as needed
  4. XANAX [Suspect]
     Dosage: UNK

REACTIONS (4)
  - Breast neoplasm [Unknown]
  - Vocal cord neoplasm [Unknown]
  - Off label use [Unknown]
  - Malaise [Unknown]
